FAERS Safety Report 15300777 (Version 1)
Quarter: 2018Q3

REPORT INFORMATION
  Report Type: Spontaneous
  Country: US (occurrence: US)
  Receive Date: 20180808
  Receipt Date: 20180808
  Transmission Date: 20181010
  Serious: Yes (Other)
  Sender: FDA-Public Use
  Company Number: None

PATIENT
  Age: 74 Year
  Sex: Female
  Weight: 53.98 kg

DRUGS (4)
  1. NAMZARIC [Suspect]
     Active Substance: DONEPEZIL HYDROCHLORIDE\MEMANTINE HYDROCHLORIDE
     Indication: DEMENTIA
     Route: 048
     Dates: start: 20180530, end: 20180620
  2. VITAMIN D3 [Concomitant]
     Active Substance: CHOLECALCIFEROL
  3. LISINOPRIL. [Concomitant]
     Active Substance: LISINOPRIL
  4. BIZ [Concomitant]

REACTIONS (2)
  - Alopecia [None]
  - Major depression [None]

NARRATIVE: CASE EVENT DATE: 20180620
